FAERS Safety Report 8375632-9 (Version None)
Quarter: 2012Q2

REPORT INFORMATION
  Report Type: 
  Country: None (occurrence: None)
  Receive Date: 20120522
  Receipt Date: 20120508
  Transmission Date: 20120825
  Serious: Yes (Hospitalization, Other)
  Sender: FDA-Public Use
  Company Number: LK-RANBAXY-2012RR-56391

PATIENT
  Age: 18 Year
  Sex: Female

DRUGS (1)
  1. METFORMIN HCL [Suspect]
     Indication: SUICIDE ATTEMPT
     Dosage: 17.5 G (35 TABLETS)
     Route: 048

REACTIONS (6)
  - OVERDOSE [None]
  - LACTIC ACIDOSIS [None]
  - GRAND MAL CONVULSION [None]
  - HYPOGLYCAEMIA [None]
  - RENAL FAILURE ACUTE [None]
  - DRUG INTERACTION [None]
